FAERS Safety Report 4476538-8 (Version None)
Quarter: 2004Q4

REPORT INFORMATION
  Report Type: 
  Country: None (occurrence: None)
  Receive Date: 20041012
  Receipt Date: 20040927
  Transmission Date: 20050328
  Serious: Yes (Death)
  Sender: FDA-Public Use
  Company Number: 2004070986

PATIENT
  Age: 32 Year

DRUGS (2)
  1. SERTRALINE HYDROCHLORIDE [Suspect]
     Indication: ILL-DEFINED DISORDER
  2. ALL OTHER NON-THERAPEUTIC PRODUCTS (ALL OTHER NON-THERAPEUTIC PRODUCTS [Suspect]
     Indication: ILL-DEFINED DISORDER

REACTIONS (2)
  - EXPOSURE TO TOXIC AGENT [None]
  - OVERDOSE [None]
